FAERS Safety Report 17074725 (Version 2)
Quarter: 2019Q4

REPORT INFORMATION
  Report Type: Report from Study
  Country: CH (occurrence: CH)
  Receive Date: 20191126
  Receipt Date: 20191206
  Transmission Date: 20200122
  Serious: Yes (Life-Threatening)
  Sender: FDA-Public Use
  Company Number: CH-ROCHE-2480341

PATIENT
  Age: 79 Year
  Sex: Male
  Weight: 81 kg

DRUGS (8)
  1. CARBOPLATIN. [Suspect]
     Active Substance: CARBOPLATIN
     Indication: MESOTHELIOMA
     Dosage: LAST DOSE PRIOR TO EVENT: 07/NOV/2019?D1 Q3W; 4-6 CYCLES; I.V.
     Route: 042
     Dates: start: 20190815, end: 20191203
  2. CO-AMOXICILLIN [Concomitant]
     Active Substance: AMOXICILLIN\CLAVULANATE POTASSIUM
  3. METRONIDAZOLE. [Concomitant]
     Active Substance: METRONIDAZOLE
  4. TAZOBACTAM [Concomitant]
     Active Substance: TAZOBACTAM
  5. ATEZOLIZUMAB. [Suspect]
     Active Substance: ATEZOLIZUMAB
     Indication: MESOTHELIOMA
     Dosage: LAST DOSE BEFORE SAE: 07/NOV/2019?D1Q3W; I.V.; 1200 MG/20 ML
     Route: 042
     Dates: start: 20190815
  6. PEMETREXED. [Suspect]
     Active Substance: PEMETREXED
     Indication: MESOTHELIOMA
     Dosage: LAST DOSE PRIOR TO EVENT: 07/NOV/2019?D1Q3W; 4-6 CYCLES
     Route: 042
     Dates: start: 20190815, end: 20191203
  7. PIPERACILLIN. [Concomitant]
     Active Substance: PIPERACILLIN SODIUM
  8. BEVACIZUMAB. [Suspect]
     Active Substance: BEVACIZUMAB
     Indication: MESOTHELIOMA
     Dosage: LAST DOSE PRIOR TO EVENT: 07/NOV/2019?D1Q3W; I.V.; 400 MG/16 ML
     Route: 042
     Dates: start: 20190815, end: 20191203

REACTIONS (1)
  - Diverticulitis [Recovered/Resolved]

NARRATIVE: CASE EVENT DATE: 20191115
